FAERS Safety Report 7811114-8 (Version None)
Quarter: 2011Q4

REPORT INFORMATION
  Report Type: 
  Country: None (occurrence: None)
  Receive Date: 20111011
  Receipt Date: 20110929
  Transmission Date: 20120403
  Serious: Yes (Disabling)
  Sender: FDA-Public Use
  Company Number: OSCN-NO-0608S-0218

PATIENT
  Age: 63 Year
  Sex: Male

DRUGS (1)
  1. OMNISCAN [Suspect]
     Indication: PRODUCT USED FOR UNKNOWN INDICATION
     Dosage: 50 ML, SINGLE DOSE, INTRAVENOUS
     Route: 042
     Dates: start: 20030508, end: 20030508

REACTIONS (1)
  - NEPHROGENIC SYSTEMIC FIBROSIS [None]
